FAERS Safety Report 4913942-5 (Version None)
Quarter: 2006Q1

REPORT INFORMATION
  Report Type: 
  Country: None (occurrence: None)
  Receive Date: 20060210
  Receipt Date: 20060127
  Transmission Date: 20060701
  Serious: No
  Sender: FDA-Public Use
  Company Number: 2005S1011111

PATIENT
  Age: 78 Year
  Sex: Female

DRUGS (2)
  1. SPIRONOLACTONE [Suspect]
     Indication: HYPERTENSION
     Dosage: 25 MG; TIW; ORAL
     Route: 048
     Dates: start: 19890101
  2. DILTIAZEM HYDROCHLORIDE [Concomitant]

REACTIONS (3)
  - HEPATIC LESION [None]
  - HEPATIC NEOPLASM MALIGNANT [None]
  - PNEUMONIA [None]
